FAERS Safety Report 6849949-0 (Version None)
Quarter: 2010Q3

REPORT INFORMATION
  Report Type: 
  Country: None (occurrence: None)
  Receive Date: 20100716
  Receipt Date: 20071004
  Transmission Date: 20110219
  Serious: No
  Sender: FDA-Public Use
  Company Number: US-PFIZER INC-2007084863

PATIENT
  Sex: Male
  Weight: 70.3 kg

DRUGS (6)
  1. CHANTIX [Suspect]
     Indication: SMOKING CESSATION THERAPY
     Dates: start: 20070924
  2. ADVAIR DISKUS 100/50 [Concomitant]
     Indication: PROSTATOMEGALY
  3. LIPITOR [Concomitant]
     Indication: BLOOD CHOLESTEROL ABNORMAL
  4. ZETIA [Concomitant]
     Indication: BLOOD CHOLESTEROL ABNORMAL
  5. AVODART [Concomitant]
  6. LAXATIVES [Concomitant]

REACTIONS (3)
  - CONSTIPATION [None]
  - FLATULENCE [None]
  - NAUSEA [None]
